FAERS Safety Report 21053079 (Version 2)
Quarter: 2022Q3

REPORT INFORMATION
  Report Type: Spontaneous
  Country: US (occurrence: US)
  Receive Date: 20220707
  Receipt Date: 20220719
  Transmission Date: 20221027
  Serious: No
  Sender: FDA-Public Use
  Company Number: US-UNITED THERAPEUTICS-UNT-2022-009939

PATIENT
  Sex: Female

DRUGS (6)
  1. TYVASO [Suspect]
     Active Substance: TREPROSTINIL
     Indication: Pulmonary arterial hypertension
     Dosage: UNK
     Dates: start: 20220421
  2. TYVASO [Suspect]
     Active Substance: TREPROSTINIL
     Dosage: 24 ?G, QID
     Dates: start: 2022, end: 2022
  3. TYVASO [Suspect]
     Active Substance: TREPROSTINIL
     Dosage: 30 ?G, QID
     Dates: start: 2022, end: 2022
  4. TYVASO [Suspect]
     Active Substance: TREPROSTINIL
     Dosage: 18 ?G, QID
     Dates: start: 2022, end: 20220608
  5. TADALAFIL [Suspect]
     Active Substance: TADALAFIL
     Indication: Product used for unknown indication
     Dosage: 40 MG
     Route: 065
  6. TADALAFIL [Suspect]
     Active Substance: TADALAFIL
     Dosage: 20 MG
     Route: 065

REACTIONS (12)
  - Flushing [Unknown]
  - Cough [Not Recovered/Not Resolved]
  - Nausea [Unknown]
  - Headache [Unknown]
  - Blood iron decreased [Unknown]
  - Drug intolerance [Unknown]
  - Throat tightness [Unknown]
  - Therapy non-responder [Unknown]
  - Illness [Unknown]
  - Feeling abnormal [Unknown]
  - Epistaxis [Unknown]
  - Saliva altered [Unknown]

NARRATIVE: CASE EVENT DATE: 20220101
